FAERS Safety Report 24385090 (Version 1)
Quarter: 2024Q4

REPORT INFORMATION
  Report Type: Report from Study
  Country: DE (occurrence: DE)
  Receive Date: 20241001
  Receipt Date: 20241001
  Transmission Date: 20250115
  Serious: Yes (Other)
  Sender: MYLAN
  Company Number: DE-BRISTOL-MYERS SQUIBB COMPANY-2024-141611

PATIENT
  Age: 59 Year
  Sex: Female
  Weight: 68.7 kg

DRUGS (35)
  1. PREGABALIN [Suspect]
     Active Substance: PREGABALIN
     Indication: Pain
     Dosage: 150 MILLIGRAM, QD
     Route: 048
     Dates: start: 20240828, end: 20240829
  2. PREGABALIN [Suspect]
     Active Substance: PREGABALIN
     Dosage: 150 MILLIGRAM, BID
     Route: 048
     Dates: start: 20240830, end: 20240905
  3. NIVOLUMAB [Suspect]
     Active Substance: NIVOLUMAB
     Indication: Non-small cell lung cancer
     Dosage: 360 MILLIGRAM, Q21D (21 DAYS/CYCLE FOR 3 CYCLES)
     Route: 042
     Dates: start: 20240719
  4. PACLITAXEL [Suspect]
     Active Substance: PACLITAXEL
     Indication: Non-small cell lung cancer
     Dosage: 200 MILLIGRAM/SQ. METER
     Route: 042
     Dates: start: 20240719
  5. PACLITAXEL [Suspect]
     Active Substance: PACLITAXEL
     Dosage: 200 MILLIGRAM/SQ. METER
     Route: 042
     Dates: start: 20240809
  6. PACLITAXEL [Suspect]
     Active Substance: PACLITAXEL
     Dosage: 200 MILLIGRAM/SQ. METER
     Route: 042
     Dates: start: 20240830
  7. CARBOPLATIN [Suspect]
     Active Substance: CARBOPLATIN
     Indication: Non-small cell lung cancer
     Dosage: DOSE: 6 AUC - MG/MIN*ML
     Route: 042
     Dates: start: 20240719
  8. CARBOPLATIN [Suspect]
     Active Substance: CARBOPLATIN
     Dosage: DOSE: 6 AUC - MG/MIN*ML
     Route: 042
     Dates: start: 20240809
  9. CARBOPLATIN [Suspect]
     Active Substance: CARBOPLATIN
     Dosage: DOSE: 6 AUC - MG/MIN*ML
     Route: 042
     Dates: start: 20240830
  10. GRANISETRON [Concomitant]
     Active Substance: GRANISETRON
     Indication: Prophylaxis
     Dosage: 1 MILLIGRAM, CYCLE (PER CYCLE)
     Route: 042
     Dates: start: 20240719, end: 20240719
  11. GRANISETRON [Concomitant]
     Active Substance: GRANISETRON
     Dosage: 1 MILLIGRAM, CYCLE (PER CYCLE)
     Route: 042
     Dates: start: 20240809, end: 20240809
  12. GRANISETRON [Concomitant]
     Active Substance: GRANISETRON
     Indication: Prophylaxis
     Dosage: 2 MILLIGRAM, CYCLE (PER CYCLE)
     Route: 048
     Dates: start: 20240720, end: 20240720
  13. GRANISETRON [Concomitant]
     Active Substance: GRANISETRON
     Dosage: 2 MILLIGRAM, CYCLE (PER CYCLE)
     Route: 048
     Dates: start: 20240831, end: 20240901
  14. DIMETHINDENE [Concomitant]
     Active Substance: DIMETHINDENE
     Indication: Prophylaxis
     Dosage: 4 MILLIGRAM, CYCLE (PER CYCLE)
     Route: 042
     Dates: start: 20240719, end: 20240719
  15. DIMETHINDENE [Concomitant]
     Active Substance: DIMETHINDENE
     Dosage: 4 MILLIGRAM, CYCLE (PER CYCLE)
     Route: 042
     Dates: start: 20240809, end: 20240809
  16. Cimetidin [Concomitant]
     Indication: Prophylaxis
     Dosage: 200 MILLIGRAM, CYCLE (PER CYCLE)
     Route: 042
     Dates: start: 20240719, end: 20240719
  17. Cimetidin [Concomitant]
     Dosage: 200 MILLIGRAM, CYCLE (PER CYCLE)
     Route: 042
     Dates: start: 20240809, end: 20240809
  18. DEXAMETHASONE [Concomitant]
     Active Substance: DEXAMETHASONE
     Indication: Prophylaxis
     Dosage: 12 MILLIGRAM
     Route: 042
     Dates: start: 20240719, end: 20240719
  19. DEXAMETHASONE [Concomitant]
     Active Substance: DEXAMETHASONE
     Dosage: 12 MILLIGRAM, CYCLE (PER CYCLE)
     Route: 042
     Dates: start: 20240809, end: 20240809
  20. DEXAMETHASONE [Concomitant]
     Active Substance: DEXAMETHASONE
     Dosage: 12 MILLIGRAM, CYCLE (PER CYCLE)
     Route: 042
     Dates: start: 20240830, end: 20240830
  21. DEXAMETHASONE [Concomitant]
     Active Substance: DEXAMETHASONE
     Indication: Prophylaxis
     Dosage: 8 MILLIGRAM, CYCLE (PER CYCLE)
     Route: 048
     Dates: start: 20240720, end: 20240721
  22. DEXAMETHASONE [Concomitant]
     Active Substance: DEXAMETHASONE
     Dosage: 8 MILLIGRAM, CYCLE (PER CYCLE)
     Route: 048
     Dates: start: 20240831, end: 20240901
  23. FENOTEROL HYDROBROMIDE\IPRATROPIUM BROMIDE [Concomitant]
     Active Substance: FENOTEROL HYDROBROMIDE\IPRATROPIUM BROMIDE
     Indication: Asthma
     Dosage: 50 MICROGRAM, PRN (INHALATIVE, FREQUENCY: P.R.N. (AS NEEDED))
     Route: 055
     Dates: start: 1991
  24. ROSUVASTATIN [Concomitant]
     Active Substance: ROSUVASTATIN
     Indication: Hypercholesterolaemia
     Dosage: 10 MILLIGRAM, QD
     Route: 048
     Dates: start: 2023
  25. FILGRASTIM [Concomitant]
     Active Substance: FILGRASTIM
     Indication: Prophylaxis
     Dosage: 30 INTERNATIONAL UNIT, CYCLE (PER CYCLE)
     Route: 058
     Dates: start: 20240815, end: 20240819
  26. FILGRASTIM [Concomitant]
     Active Substance: FILGRASTIM
     Dosage: 3 INTERNATIONAL UNIT, CYCLE (PER CYCLE)
     Route: 058
     Dates: start: 20240906, end: 20240910
  27. FILGRASTIM [Concomitant]
     Active Substance: FILGRASTIM
     Indication: Prophylaxis
     Dosage: 30 INTERNATIONAL UNIT, CYCLE (PER CYCLE)
     Route: 042
     Dates: start: 20240722, end: 20240726
  28. PROGESTERONE [Concomitant]
     Active Substance: PROGESTERONE
     Indication: Menopause
     Dosage: 100 MILLIGRAM, QD
     Route: 048
  29. ESTRADIOL [Concomitant]
     Active Substance: ESTRADIOL
     Indication: Menopause
     Dosage: 0.1 PERCENT, QD
     Route: 061
  30. APREPITANT [Concomitant]
     Active Substance: APREPITANT
     Indication: Prophylaxis
     Dosage: 125 MILLIGRAM, CYCLE (PER CYCLE)
     Route: 048
     Dates: start: 20240719, end: 20240719
  31. APREPITANT [Concomitant]
     Active Substance: APREPITANT
     Dosage: 80 MILLIGRAM, CYCLE (PER CYCLE)
     Route: 048
     Dates: start: 20240720, end: 20240721
  32. APREPITANT [Concomitant]
     Active Substance: APREPITANT
     Dosage: 125 MILLIGRAM, CYCLE (PER CYCLE)
     Route: 048
     Dates: start: 20240830, end: 20240830
  33. APREPITANT [Concomitant]
     Active Substance: APREPITANT
     Dosage: 80 MILLIGRAM, CYCLE (PER CYCLE)
     Route: 048
     Dates: start: 20240831, end: 20240901
  34. ACETAMINOPHEN [Concomitant]
     Active Substance: ACETAMINOPHEN
     Indication: Prophylaxis
     Dosage: 1000 MILLIGRAM
     Route: 042
     Dates: start: 20240719, end: 20240719
  35. ACETAMINOPHEN [Concomitant]
     Active Substance: ACETAMINOPHEN
     Dosage: 1000 MILLIGRAM, CYCLE (PER CYCLE)
     Route: 042
     Dates: start: 20240809, end: 20240809

REACTIONS (6)
  - Neuropathy peripheral [Recovered/Resolved]
  - Alopecia [Not Recovered/Not Resolved]
  - Breast pain [Recovered/Resolved]
  - Arthralgia [Recovered/Resolved]
  - Neck pain [Recovered/Resolved]
  - Dizziness [Recovered/Resolved]

NARRATIVE: CASE EVENT DATE: 20240901
